FAERS Safety Report 4591363-5 (Version None)
Quarter: 2005Q1

REPORT INFORMATION
  Report Type: 
  Country: None (occurrence: None)
  Receive Date: 20050222
  Receipt Date: 20050208
  Transmission Date: 20050727
  Serious: Yes (Hospitalization)
  Sender: FDA-Public Use
  Company Number: 2005020007

PATIENT
  Age: 19 Year
  Sex: Male

DRUGS (2)
  1. TALOXA (FELBAMATE) [Suspect]
     Indication: EPILEPSY
     Dosage: 2100MG INCREASED TO 2400MG, PO
     Route: 048
  2. DEPAKENE [Suspect]
     Indication: EPILEPSY
     Dosage: PO
     Route: 048

REACTIONS (8)
  - ABASIA [None]
  - ANTICONVULSANT DRUG LEVEL INCREASED [None]
  - COORDINATION ABNORMAL [None]
  - DIET REFUSAL [None]
  - HYPOTHERMIA [None]
  - SOMNOLENCE [None]
  - VOMITING [None]
  - WEIGHT DECREASED [None]
